FAERS Safety Report 14134140 (Version 5)
Quarter: 2019Q4

REPORT INFORMATION
  Report Type: Report from Study
  Country: US (occurrence: US)
  Receive Date: 20171026
  Receipt Date: 20191008
  Transmission Date: 20200122
  Serious: Yes (Hospitalization, Other)
  Sender: FDA-Public Use
  Company Number: US-TESARO, INC.-US-2017TSO01778

PATIENT
  Age: 70 Year
  Sex: Female
  Weight: 57 kg

DRUGS (23)
  1. DICYCLOMINE [Concomitant]
     Active Substance: DICYCLOMINE HYDROCHLORIDE
     Indication: PRODUCT USED FOR UNKNOWN INDICATION
     Dosage: 10 MG, QD
     Route: 048
  2. METFORMIN [Concomitant]
     Active Substance: METFORMIN HYDROCHLORIDE
     Indication: PRODUCT USED FOR UNKNOWN INDICATION
     Dosage: 1000 MG, BID
     Route: 048
  3. NIRAPARIB [Suspect]
     Active Substance: NIRAPARIB
     Dosage: 200 MG, QD
     Route: 048
     Dates: start: 20170918
  4. OMEPRAZOLE. [Concomitant]
     Active Substance: OMEPRAZOLE
     Indication: PRODUCT USED FOR UNKNOWN INDICATION
     Dosage: 20 MG, QD
     Route: 048
  5. VITAMIN D3 [Concomitant]
     Active Substance: CHOLECALCIFEROL
     Indication: PRODUCT USED FOR UNKNOWN INDICATION
     Dosage: 5000 IU, QD
     Route: 048
  6. NIRAPARIB [Suspect]
     Active Substance: NIRAPARIB
     Dosage: 200 MG, QD
     Route: 048
     Dates: start: 20180126
  7. AMLODIPINE [Concomitant]
     Active Substance: AMLODIPINE BESYLATE
     Indication: PRODUCT USED FOR UNKNOWN INDICATION
     Dosage: 5 MG, QD
     Route: 048
  8. ETODOLAC. [Concomitant]
     Active Substance: ETODOLAC
     Indication: PRODUCT USED FOR UNKNOWN INDICATION
     Dosage: 500 MG, BID
     Route: 048
  9. PROAIR RESPICLICK [Concomitant]
     Active Substance: ALBUTEROL SULFATE
     Indication: PRODUCT USED FOR UNKNOWN INDICATION
     Dosage: 2 PUFFS, UNK
     Route: 045
  10. NIRAPARIB [Suspect]
     Active Substance: NIRAPARIB
     Dosage: 1 CAPSULE AT 6PM AND TAKES THE OTHER ONE AT 8PM
     Route: 048
     Dates: end: 20181228
  11. LEVOTHYROXINE. [Concomitant]
     Active Substance: LEVOTHYROXINE
     Indication: PRODUCT USED FOR UNKNOWN INDICATION
     Dosage: 50 MCG, QD
     Route: 048
  12. NIRAPARIB [Suspect]
     Active Substance: NIRAPARIB
     Dosage: 100 MG  AM AND 200 MG PM
     Route: 048
     Dates: start: 201708, end: 20170904
  13. NIRAPARIB [Suspect]
     Active Substance: NIRAPARIB
     Dosage: 200 MG, DAILY
     Route: 048
     Dates: start: 20181229, end: 20190411
  14. LORATADINE. [Concomitant]
     Active Substance: LORATADINE
     Indication: PRODUCT USED FOR UNKNOWN INDICATION
     Dosage: 10 MG, QD
     Route: 048
  15. MIRTAZAPINE. [Concomitant]
     Active Substance: MIRTAZAPINE
     Indication: PRODUCT USED FOR UNKNOWN INDICATION
     Dosage: 15 MG, QD
     Route: 048
  16. NIRAPARIB [Suspect]
     Active Substance: NIRAPARIB
     Dosage: 200 MG, (100MG AM,100MG PM)
     Route: 048
     Dates: start: 20190408
  17. ALPRAZOLAM. [Concomitant]
     Active Substance: ALPRAZOLAM
     Indication: PRODUCT USED FOR UNKNOWN INDICATION
     Dosage: 0.5 MG, QD
     Route: 048
  18. CYCLOBENZAPRINE. [Concomitant]
     Active Substance: CYCLOBENZAPRINE
     Indication: PRODUCT USED FOR UNKNOWN INDICATION
     Dosage: 5 MG, UNK
     Route: 048
  19. SYMBICORT [Concomitant]
     Active Substance: BUDESONIDE\FORMOTEROL FUMARATE DIHYDRATE
     Indication: PRODUCT USED FOR UNKNOWN INDICATION
     Dosage: 160 MCG TO 4.5 MCG
     Route: 045
  20. NIRAPARIB [Suspect]
     Active Substance: NIRAPARIB
     Indication: OVARIAN CANCER
     Dosage: 300 MG, QD
     Route: 048
     Dates: start: 20170626, end: 201708
  21. NIRAPARIB [Suspect]
     Active Substance: NIRAPARIB
     Dosage: 200 MG, PM WITH FOOD
  22. ATORVASTATIN [Concomitant]
     Active Substance: ATORVASTATIN
     Indication: PRODUCT USED FOR UNKNOWN INDICATION
     Dosage: 40 MG, QD
     Route: 048
  23. LOSARTAN. [Concomitant]
     Active Substance: LOSARTAN
     Indication: PRODUCT USED FOR UNKNOWN INDICATION
     Dosage: 50 MG, QD
     Route: 048

REACTIONS (39)
  - Pharyngitis [Recovered/Resolved]
  - Alopecia [Recovered/Resolved]
  - Toothache [Recovered/Resolved]
  - Paranoia [Recovered/Resolved]
  - Photosensitivity reaction [Not Recovered/Not Resolved]
  - Dry throat [Not Recovered/Not Resolved]
  - Dehydration [Recovered/Resolved]
  - Hypertension [Recovered/Resolved]
  - Chills [Recovered/Resolved]
  - Abscess oral [Recovered/Resolved]
  - Visual impairment [Recovered/Resolved]
  - Blood pressure increased [Recovered/Resolved]
  - Stomatitis [Recovered/Resolved]
  - Fatigue [Recovered/Resolved]
  - Back pain [Recovered/Resolved]
  - Balance disorder [Unknown]
  - Head injury [Recovered/Resolved]
  - Fall [Recovered/Resolved]
  - Scan abnormal [Not Recovered/Not Resolved]
  - Dry mouth [Not Recovered/Not Resolved]
  - Influenza [Recovered/Resolved]
  - Drug intolerance [Unknown]
  - Oral mucosal blistering [Recovered/Resolved]
  - Red blood cell count decreased [Recovered/Resolved]
  - Nasopharyngitis [Not Recovered/Not Resolved]
  - Oropharyngeal blistering [Recovered/Resolved]
  - Emotional distress [Recovered/Resolved]
  - Influenza like illness [Unknown]
  - Dysphagia [Unknown]
  - Depression [Recovered/Resolved]
  - Inappropriate schedule of product administration [Recovered/Resolved]
  - Oropharyngeal pain [Recovering/Resolving]
  - Abdominal discomfort [Recovered/Resolved]
  - Memory impairment [Recovered/Resolved]
  - Disease progression [Unknown]
  - Nervousness [Recovered/Resolved]
  - Headache [Not Recovered/Not Resolved]
  - Product dose omission [Unknown]
  - Constipation [Unknown]

NARRATIVE: CASE EVENT DATE: 2017
